FAERS Safety Report 5038610-3 (Version None)
Quarter: 2006Q2

REPORT INFORMATION
  Report Type: 
  Country: None (occurrence: None)
  Receive Date: 20060629
  Receipt Date: 20060621
  Transmission Date: 20061013
  Serious: Yes (Other)
  Sender: FDA-Public Use
  Company Number: 2006AC01198

PATIENT
  Age: 80 Year
  Sex: Female

DRUGS (5)
  1. OMEPRAZOLE [Suspect]
     Indication: GASTROOESOPHAGEAL REFLUX DISEASE
     Dosage: TAKEN FOR 12 WEEKS AT TIME OF DIAGNOSIS.
  2. FRUSEMIDE [Concomitant]
  3. METOPROLOL TARTRATE [Concomitant]
  4. ROFECOXIB [Concomitant]
  5. SIMVASTATIN [Concomitant]

REACTIONS (6)
  - ANAEMIA [None]
  - DRUG HYPERSENSITIVITY [None]
  - IMMUNE SYSTEM DISORDER [None]
  - NEPHRITIS INTERSTITIAL [None]
  - RED BLOOD CELL SEDIMENTATION RATE INCREASED [None]
  - RENAL FAILURE ACUTE [None]
